FAERS Safety Report 13874394 (Version 1)
Quarter: 2017Q3

REPORT INFORMATION
  Report Type: Spontaneous
  Country: US (occurrence: US)
  Receive Date: 20170816
  Receipt Date: 20170816
  Transmission Date: 20171127
  Serious: Yes (Other)
  Sender: FDA-Public Use
  Company Number: US-ROCHE-1055200

PATIENT
  Age: 63 Year
  Sex: Female

DRUGS (2)
  1. LUCENTIS [Suspect]
     Active Substance: RANIBIZUMAB
     Indication: RETINAL VEIN OCCLUSION
     Dosage: DATE OF LAST INJECTION: 16/FEB/2012, NO. OF INJECTION RECEIVED: 3
     Route: 050
     Dates: start: 20120216
  2. LUCENTIS [Suspect]
     Active Substance: RANIBIZUMAB
     Indication: RETINAL OEDEMA

REACTIONS (1)
  - Endophthalmitis [Recovering/Resolving]

NARRATIVE: CASE EVENT DATE: 20120222
